FAERS Safety Report 21038993 (Version 8)
Quarter: 2023Q2

REPORT INFORMATION
  Report Type: Report from Study
  Country: AU (occurrence: AU)
  Receive Date: 20220704
  Receipt Date: 20230627
  Transmission Date: 20230722
  Serious: Yes (Hospitalization)
  Sender: FDA-Public Use
  Company Number: AU-ARGENX-2022-ARGX-AU001067

PATIENT
  Age: 75 Year
  Sex: Female
  Weight: 110.5 kg

DRUGS (21)
  1. EFGARTIGIMOD ALFA [Suspect]
     Active Substance: EFGARTIGIMOD ALFA
     Indication: Immune thrombocytopenia
     Dosage: 1000 MG, 1/WEEK
     Dates: start: 20220228, end: 20220228
  2. EFGARTIGIMOD ALFA [Suspect]
     Active Substance: EFGARTIGIMOD ALFA
     Dosage: 5.6 ML
     Dates: start: 20220615, end: 20220615
  3. EFGARTIGIMOD ALFA [Suspect]
     Active Substance: EFGARTIGIMOD ALFA
     Dosage: 1000 MG
     Route: 058
     Dates: start: 20220913
  4. HYALURONIDASE (HUMAN RECOMBINANT) [Suspect]
     Active Substance: HYALURONIDASE (HUMAN RECOMBINANT)
     Indication: Immune thrombocytopenia
     Dosage: 1000 MG, 1/WEEK
     Dates: start: 20220228, end: 20220228
  5. HYALURONIDASE (HUMAN RECOMBINANT) [Suspect]
     Active Substance: HYALURONIDASE (HUMAN RECOMBINANT)
     Dosage: 5.6 ML
     Dates: start: 20220615, end: 20220615
  6. HYALURONIDASE (HUMAN RECOMBINANT) [Suspect]
     Active Substance: HYALURONIDASE (HUMAN RECOMBINANT)
     Dosage: 1000 MG
     Route: 058
     Dates: start: 20220913
  7. ACTICOAT FLEX 3 [Concomitant]
     Indication: Skin ulcer
     Dosage: 1 PATCH Q3D
     Route: 061
     Dates: start: 20210607
  8. GENTAMICIN [Concomitant]
     Active Substance: GENTAMICIN
     Indication: Infection
     Dosage: 260 G ONCE
     Route: 042
     Dates: start: 20220527, end: 20220527
  9. MOVICOL [Concomitant]
     Active Substance: POLYETHYLENE GLYCOL 3350\POTASSIUM CHLORIDE\SODIUM BICARBONATE\SODIUM CHLORIDE
     Indication: Constipation
     Dosage: 1-2 UNITS SACHET, PRN
     Route: 048
     Dates: start: 20200120
  10. NIFEDIPINE [Concomitant]
     Active Substance: NIFEDIPINE
     Indication: Hypertension
     Dosage: 30 MG, DAILY
     Route: 048
     Dates: start: 1998, end: 20220529
  11. TELMISARTAN [Concomitant]
     Active Substance: TELMISARTAN
     Indication: Hypertension
     Dosage: 40 MG, DAILY
     Route: 048
     Dates: start: 1992
  12. ATORVASTATIN [Concomitant]
     Active Substance: ATORVASTATIN
     Indication: Hypertension
     Dosage: 20 MG, DAILY AT NIGHT
     Route: 048
     Dates: start: 2012
  13. METOPROLOL [Concomitant]
     Active Substance: METOPROLOL
     Indication: Product used for unknown indication
     Dosage: 25 MG, BID
     Route: 048
     Dates: start: 20220528
  14. METOPROLOL [Concomitant]
     Active Substance: METOPROLOL
     Dosage: 37.5 MG, BID
     Route: 048
     Dates: start: 20220529, end: 20220606
  15. PANTOPRAZOLE SODIUM [Concomitant]
     Active Substance: PANTOPRAZOLE SODIUM
     Indication: Gastrooesophageal reflux disease
     Dosage: 40 MG, DAILY
     Route: 048
     Dates: start: 20220531
  16. AMIODARONE [Concomitant]
     Active Substance: AMIODARONE
     Indication: Atrial fibrillation
     Dosage: 30 MG (0.6 ML) STAT
     Route: 042
  17. AMIODARONE [Concomitant]
     Active Substance: AMIODARONE
     Dosage: 300 MG (0.6 ML) STAT
     Route: 042
     Dates: start: 20220529
  18. ACETAMINOPHEN [Concomitant]
     Active Substance: ACETAMINOPHEN
     Indication: Product used for unknown indication
     Dosage: 500 TO 100 MG, PRN
     Route: 048
     Dates: start: 20220529
  19. METAMUCIL [Concomitant]
     Active Substance: PLANTAGO SEED
     Indication: Constipation prophylaxis
     Dosage: 4 TSP, PRN
     Route: 048
     Dates: start: 1991
  20. ZINC [Concomitant]
     Active Substance: ZINC
     Indication: Skin ulcer
     Dosage: 1 APPLICATION Q3D
     Route: 061
     Dates: start: 20210607
  21. CLOTRIMAZOLE\HYDROCORTISONE [Concomitant]
     Active Substance: CLOTRIMAZOLE\HYDROCORTISONE
     Indication: Skin ulcer
     Dosage: 1 APPLICATION, PRN
     Route: 061
     Dates: start: 20220513

REACTIONS (2)
  - Pneumonia [Recovered/Resolved]
  - Cellulitis [Recovered/Resolved]

NARRATIVE: CASE EVENT DATE: 20220627
